FAERS Safety Report 9433439 (Version 1)
Quarter: 2013Q3

REPORT INFORMATION
  Report Type: Report from Study
  Country: CO (occurrence: CO)
  Receive Date: 20130731
  Receipt Date: 20130731
  Transmission Date: 20140515
  Serious: Yes (Other)
  Sender: FDA-Public Use
  Company Number: CO-ABBOTT-13P-036-1127351-00

PATIENT
  Age: 33 Year
  Sex: Female
  Weight: 77 kg

DRUGS (1)
  1. HUMIRA [Suspect]
     Indication: RHEUMATOID ARTHRITIS
     Route: 058
     Dates: start: 20091119, end: 20130616

REACTIONS (2)
  - Abortion spontaneous [Unknown]
  - Pelvic pain [Unknown]
